FAERS Safety Report 14219676 (Version 3)
Quarter: 2019Q2

REPORT INFORMATION
  Report Type: Spontaneous
  Country: US (occurrence: US)
  Receive Date: 20171123
  Receipt Date: 20190607
  Transmission Date: 20190711
  Serious: No
  Sender: FDA-Public Use
  Company Number: US-PFIZER INC-2017503866

PATIENT
  Sex: Female
  Weight: 82.1 kg

DRUGS (2)
  1. LYRICA [Suspect]
     Active Substance: PREGABALIN
     Indication: IDIOPATHIC PARTIAL EPILEPSY
  2. LYRICA [Suspect]
     Active Substance: PREGABALIN
     Indication: GENERALISED TONIC-CLONIC SEIZURE
     Dosage: 300 MG, DAILY (100MG IN THE MORNING AND 200MG AT NIGHT)
     Route: 048
     Dates: start: 2007

REACTIONS (3)
  - Cognitive disorder [Recovering/Resolving]
  - Nasopharyngitis [Unknown]
  - Weight increased [Not Recovered/Not Resolved]

NARRATIVE: CASE EVENT DATE: 2007
